FAERS Safety Report 4315093-X (Version None)
Quarter: 2004Q1

REPORT INFORMATION
  Report Type: 
  Country: None (occurrence: None)
  Receive Date: 20040310
  Receipt Date: 20040305
  Transmission Date: 20041129
  Serious: Yes (Hospitalization)
  Sender: FDA-Public Use
  Company Number: DE-ROCHE-360958

PATIENT
  Age: 63 Year
  Sex: Female

DRUGS (4)
  1. CAPECITABINE [Suspect]
     Indication: BREAST CANCER
     Route: 065
     Dates: end: 20040226
  2. NAVELBINE [Suspect]
     Indication: BREAST CANCER
     Route: 065
     Dates: end: 20040220
  3. DISOTAT [Concomitant]
  4. AQUAPHOR 10 [Concomitant]

REACTIONS (1)
  - PHLEBOTHROMBOSIS [None]
